FAERS Safety Report 7207971-9 (Version None)
Quarter: 2011Q1

REPORT INFORMATION
  Report Type: 
  Country: None (occurrence: None)
  Receive Date: 20110104
  Receipt Date: 20101220
  Transmission Date: 20110831
  Serious: Yes (Hospitalization)
  Sender: FDA-Public Use
  Company Number: ES-JNJFOC-20101207551

PATIENT
  Age: 78 Year
  Sex: Male

DRUGS (6)
  1. ATACAND [Concomitant]
     Indication: HYPERTENSION
     Route: 065
  2. PLAVIX [Suspect]
     Indication: CEREBROVASCULAR ACCIDENT
     Route: 048
  3. FLUVASTATIN [Concomitant]
     Indication: HYPERCHOLESTEROLAEMIA
     Route: 065
  4. REMINYL [Suspect]
     Indication: DEMENTIA ALZHEIMER'S TYPE
     Route: 048
  5. OMNIC OCAS [Concomitant]
     Indication: BENIGN PROSTATIC HYPERPLASIA
     Route: 065
  6. METFORMIN [Concomitant]
     Indication: TYPE 2 DIABETES MELLITUS
     Route: 065

REACTIONS (4)
  - MELAENA [None]
  - DUODENAL ULCER [None]
  - UPPER GASTROINTESTINAL HAEMORRHAGE [None]
  - ANAEMIA [None]
